FAERS Safety Report 4293059-6 (Version None)
Quarter: 2004Q1

REPORT INFORMATION
  Report Type: 
  Country: None (occurrence: None)
  Receive Date: 20040210
  Receipt Date: 20040203
  Transmission Date: 20041129
  Serious: Yes (Disabling, Other)
  Sender: FDA-Public Use
  Company Number: 200410079BNE

PATIENT
  Age: 70 Year
  Sex: Male

DRUGS (3)
  1. CIPROFLOXACIN [Suspect]
     Indication: EPIDIDYMITIS
     Dosage: BID, ORAL
     Route: 048
     Dates: start: 20030812, end: 20030817
  2. CIPROFLOXACIN [Suspect]
     Indication: ORCHITIS
     Dosage: BID, ORAL
     Route: 048
     Dates: start: 20030812, end: 20030817
  3. METRONIDAZOLE [Concomitant]

REACTIONS (2)
  - MUSCLE CRAMP [None]
  - PAIN IN EXTREMITY [None]
